FAERS Safety Report 7153489-1 (Version None)
Quarter: 2010Q4

REPORT INFORMATION
  Report Type: 
  Country: None (occurrence: None)
  Receive Date: 20101213
  Receipt Date: 20101206
  Transmission Date: 20110411
  Serious: Yes (Hospitalization)
  Sender: FDA-Public Use
  Company Number: B0677847A

PATIENT
  Sex: Male

DRUGS (4)
  1. AVOLVE [Suspect]
     Route: 048
  2. TAMSULOSIN HCL [Concomitant]
     Route: 048
  3. TAKEPRON [Concomitant]
     Route: 048
  4. WARFARIN SODIUM [Concomitant]
     Route: 048

REACTIONS (1)
  - LUNG DISORDER [None]
